FAERS Safety Report 7401303-9 (Version None)
Quarter: 2011Q2

REPORT INFORMATION
  Report Type: 
  Country: None (occurrence: None)
  Receive Date: 20110407
  Receipt Date: 20110404
  Transmission Date: 20111010
  Serious: Yes (Life-Threatening)
  Sender: FDA-Public Use
  Company Number: FR-ABBOTT-11P-056-0717205-00

PATIENT
  Sex: Female

DRUGS (4)
  1. SEVOFLURANE [Suspect]
     Indication: ANAESTHESIA
     Route: 055
     Dates: start: 20101210, end: 20101210
  2. PROPOFOL [Suspect]
     Indication: ANAESTHESIA
     Route: 042
     Dates: start: 20101210, end: 20101210
  3. PERFALGAN [Suspect]
     Indication: ANALGESIC THERAPY
     Route: 042
     Dates: start: 20101210, end: 20101210
  4. ULTIVA [Suspect]
     Indication: ANAESTHESIA
     Route: 042
     Dates: start: 20101210, end: 20101210

REACTIONS (2)
  - RESPIRATORY ARREST [None]
  - OXYGEN SATURATION DECREASED [None]
